FAERS Safety Report 4376050-0 (Version None)
Quarter: 2004Q2

REPORT INFORMATION
  Report Type: 
  Country: None (occurrence: None)
  Receive Date: 20040611
  Receipt Date: 20020516
  Transmission Date: 20050107
  Serious: Yes (Hospitalization, Disabling, Other)
  Sender: FDA-Public Use
  Company Number: US-MERCK-0205USA02073

PATIENT
  Age: 59 Year
  Sex: Female
  Weight: 77 kg

DRUGS (3)
  1. PREMARIN [Concomitant]
     Route: 065
  2. GLIPIZIDE [Concomitant]
     Route: 065
  3. VIOXX [Suspect]
     Indication: ARTHRITIS
     Route: 048

REACTIONS (35)
  - ACUTE MYOCARDIAL INFARCTION [None]
  - ANGINA UNSTABLE [None]
  - ANXIETY [None]
  - AORTIC VALVE INCOMPETENCE [None]
  - ATRIAL FIBRILLATION [None]
  - BLOOD PRESSURE INADEQUATELY CONTROLLED [None]
  - CARDIAC FAILURE ACUTE [None]
  - CARDIAC FAILURE CONGESTIVE [None]
  - CHEST PAIN [None]
  - CHONDROCALCINOSIS PYROPHOSPHATE [None]
  - COLON CANCER RECURRENT [None]
  - COLONIC POLYP [None]
  - CORONARY ARTERY DISEASE [None]
  - DIARRHOEA [None]
  - DIZZINESS [None]
  - DYSPHAGIA [None]
  - EMOTIONAL DISTRESS [None]
  - GASTRITIS [None]
  - GASTROINTESTINAL HAEMORRHAGE [None]
  - GASTROOESOPHAGEAL REFLUX DISEASE [None]
  - INNER EAR DISORDER [None]
  - LOCALISED OSTEOARTHRITIS [None]
  - MITRAL VALVE INCOMPETENCE [None]
  - PHOTOSENSITIVITY REACTION [None]
  - PLEURITIC PAIN [None]
  - RENAL CYST [None]
  - RENAL FAILURE [None]
  - SYNCOPE [None]
  - THROMBOPHLEBITIS [None]
  - TOOTH INFECTION [None]
  - TRICUSPID VALVE INCOMPETENCE [None]
  - UMBILICAL HERNIA [None]
  - URINARY TRACT INFECTION [None]
  - VEIN PAIN [None]
  - VERTIGO [None]
